FAERS Safety Report 15393068 (Version 1)
Quarter: 2018Q3

REPORT INFORMATION
  Report Type: Report from Study
  Country: JP (occurrence: JP)
  Receive Date: 20180917
  Receipt Date: 20180917
  Transmission Date: 20181010
  Serious: Yes (Other)
  Sender: FDA-Public Use
  Company Number: JP-BIOMARINAP-JP-2018-119852

PATIENT
  Age: 41 Year
  Sex: Male
  Weight: 30.2 kg

DRUGS (4)
  1. ZANTAC [Concomitant]
     Active Substance: RANITIDINE HYDROCHLORIDE
     Indication: PREMEDICATION
     Dosage: 300 MILLIGRAM, QD
     Route: 048
  2. SOL?MELCORT [Concomitant]
     Active Substance: METHYLPREDNISOLONE SODIUM SUCCINATE
     Indication: PREMEDICATION
     Dosage: 80 MILLIGRAM, QD
  3. VIMIZIM [Suspect]
     Active Substance: ELOSULFASE ALFA
     Indication: MUCOPOLYSACCHARIDOSIS IV
     Dosage: 60 MILLIGRAM, QW
     Route: 042
     Dates: start: 20170713, end: 20180614
  4. RESTAMIN A KOWA [Concomitant]
     Indication: PREMEDICATION
     Dosage: 20 MILLIGRAM, QD
     Route: 048

REACTIONS (2)
  - Diarrhoea [Recovered/Resolved]
  - Abdominal pain [Recovered/Resolved]

NARRATIVE: CASE EVENT DATE: 20180615
